FAERS Safety Report 5943069-5 (Version None)
Quarter: 2008Q4

REPORT INFORMATION
  Report Type: 
  Country: None (occurrence: None)
  Receive Date: 20081106
  Receipt Date: 20081028
  Transmission Date: 20090506
  Serious: Yes (Other)
  Sender: FDA-Public Use
  Company Number: HU-NOVOPROD-280354

PATIENT
  Age: 57 Year
  Sex: Female
  Weight: 89 kg

DRUGS (4)
  1. INSULATARD PENFILL [Suspect]
     Indication: TYPE 2 DIABETES MELLITUS
     Dosage: 10 IU, QD
     Route: 058
     Dates: start: 20060701
  2. INSULATARD PENFILL [Suspect]
     Dosage: 1800 IU, QD
     Dates: start: 20070723, end: 20070723
  3. ANTIDEPRESSANTS [Concomitant]
     Dates: start: 20070501
  4. ANXIOLYTICS [Concomitant]
     Dates: start: 20070501

REACTIONS (3)
  - HYPOGLYCAEMIA [None]
  - INTENTIONAL OVERDOSE [None]
  - SUICIDE ATTEMPT [None]
